FAERS Safety Report 13759529 (Version 3)
Quarter: 2017Q4

REPORT INFORMATION
  Report Type: Spontaneous
  Country: IT (occurrence: IT)
  Receive Date: 20170717
  Receipt Date: 20171110
  Transmission Date: 20180320
  Serious: Yes (Other)
  Sender: FDA-Public Use
  Company Number: IT-PFIZER INC-2017303258

PATIENT
  Age: 68 Year
  Sex: Female

DRUGS (1)
  1. PACLITAXEL. [Suspect]
     Active Substance: PACLITAXEL
     Indication: BREAST CANCER
     Dosage: UNK, CYCLIC (SIX CYCLES)

REACTIONS (2)
  - Onycholysis [Recovering/Resolving]
  - Myiasis [Recovered/Resolved]
